FAERS Safety Report 16898383 (Version 1)
Quarter: 2019Q4

REPORT INFORMATION
  Report Type: Report from Study
  Country: DE (occurrence: DE)
  Receive Date: 20191009
  Receipt Date: 20191009
  Transmission Date: 20200122
  Serious: Yes (Other)
  Sender: FDA-Public Use
  Company Number: DE-TEVA-2019-DE-1120874

PATIENT
  Sex: Female

DRUGS (2)
  1. LACOSAMIDE. [Suspect]
     Active Substance: LACOSAMIDE
     Indication: DRUG THERAPY
     Dosage: LACOSAMIDE DAILY IN THE SECOND TRIMESTER OF HER PREGNANCY
     Route: 065
  2. VALPROATE [Suspect]
     Active Substance: VALPROIC ACID
     Indication: DRUG THERAPY
     Dosage: THE MOTHER RECEIVED ANTI-EPILEPTIC TREATMENT WITH VALPROATE IN THE FIRST TRIMESTER OF HER PREGNANCY
     Route: 065

REACTIONS (2)
  - Maternal exposure during pregnancy [Unknown]
  - Abortion induced [Unknown]
